FAERS Safety Report 26161372 (Version 1)
Quarter: 2025Q4

REPORT INFORMATION
  Report Type: Spontaneous
  Country: US (occurrence: US)
  Receive Date: 20251216
  Receipt Date: 20251216
  Transmission Date: 20260118
  Serious: Yes (Other)
  Sender: CSL BEHRING
  Company Number: US-BEH-2025228470

PATIENT
  Age: 70 Year
  Sex: Female

DRUGS (1)
  1. VELTASSA [Suspect]
     Active Substance: PATIROMER
     Indication: Hyperkalaemia
     Dosage: 8.4 G, TIW
     Route: 048

REACTIONS (3)
  - Diarrhoea [Unknown]
  - Product colour issue [Unknown]
  - Off label use [Unknown]

NARRATIVE: CASE EVENT DATE: 20251203
